FAERS Safety Report 24602604 (Version 1)
Quarter: 2024Q4

REPORT INFORMATION
  Report Type: Spontaneous
  Country: US (occurrence: US)
  Receive Date: 20241111
  Receipt Date: 20241111
  Transmission Date: 20250115
  Serious: No
  Sender: TRAVERE THERAPEUTICS
  Company Number: US-TRAVERE-2024TVT01121

PATIENT
  Sex: Female

DRUGS (2)
  1. FILSPARI [Suspect]
     Active Substance: SPARSENTAN
     Indication: IgA nephropathy
     Dosage: 200MG ONCE DAILY FOR 14 DAYS
     Route: 048
     Dates: start: 20240911, end: 20240924
  2. FILSPARI [Suspect]
     Active Substance: SPARSENTAN
     Dosage: 200MG ONCE DAILY FOR 14 DAYS, THEN INCREASING TO 400MG?ONCE DAILY.
     Route: 048
     Dates: start: 20240925

REACTIONS (2)
  - Dyspnoea [Unknown]
  - Swelling [Unknown]
